FAERS Safety Report 6347297-9 (Version None)
Quarter: 2009Q3

REPORT INFORMATION
  Report Type: 
  Country: None (occurrence: None)
  Receive Date: 20090910
  Receipt Date: 20090831
  Transmission Date: 20100115
  Serious: Yes (Hospitalization)
  Sender: FDA-Public Use
  Company Number: PHHY2009JP37509

PATIENT
  Age: 83 Year
  Sex: Male

DRUGS (2)
  1. ZOMETA [Suspect]
     Indication: METASTASES TO BONE
     Dosage: 4 MG, QMO
     Route: 042
     Dates: start: 20080926, end: 20090513
  2. DOCETAXEL [Concomitant]
     Indication: PROSTATE CANCER
     Route: 042

REACTIONS (2)
  - OSTEONECROSIS [None]
  - PURULENT DISCHARGE [None]
